FAERS Safety Report 4544176-4 (Version None)
Quarter: 2005Q1

REPORT INFORMATION
  Report Type: 
  Country: None (occurrence: None)
  Receive Date: 20050104
  Receipt Date: 20040916
  Transmission Date: 20050727
  Serious: Yes (Other)
  Sender: FDA-Public Use
  Company Number: PHBS2004AR12406

PATIENT
  Age: 13 Year
  Sex: Female

DRUGS (1)
  1. TRILEPTAL [Suspect]
     Indication: EPILEPSY
     Dosage: 1050 MG, QD
     Route: 065

REACTIONS (3)
  - GALACTORRHOEA [None]
  - HYPERPROLACTINAEMIA [None]
  - MENORRHAGIA [None]
